FAERS Safety Report 10457752 (Version 2)
Quarter: 2014Q3

REPORT INFORMATION
  Report Type: Spontaneous
  Country: US (occurrence: US)
  Receive Date: 20140916
  Receipt Date: 20140916
  Transmission Date: 20150326
  Serious: Yes (Death, Hospitalization)
  Sender: FDA-Public Use
  Company Number: US-GLAXOSMITHKLINE-A0730716A

PATIENT
  Age: 57 Year
  Sex: Male
  Weight: 118.2 kg

DRUGS (4)
  1. DIABETA [Concomitant]
     Active Substance: GLYBURIDE
     Dates: start: 200403, end: 20070526
  2. AVANDIA [Suspect]
     Active Substance: ROSIGLITAZONE MALEATE
     Indication: DIABETES MELLITUS
     Dosage: 4MG PER DAY
     Route: 048
     Dates: start: 200702
  3. AMARYL [Concomitant]
     Active Substance: GLIMEPIRIDE
     Dates: start: 200611, end: 200702
  4. AVANDAMET [Suspect]
     Active Substance: METFORMIN HYDROCHLORIDE\ROSIGLITAZONE MALEATE
     Indication: TYPE 2 DIABETES MELLITUS
     Dosage: 1000MG TWICE PER DAY
     Dates: start: 20061027, end: 20070526

REACTIONS (5)
  - Pleural effusion [Unknown]
  - Myocardial infarction [Unknown]
  - Coronary artery disease [Unknown]
  - Cardiac failure congestive [Unknown]
  - Cardio-respiratory arrest [Fatal]

NARRATIVE: CASE EVENT DATE: 20070215
